FAERS Safety Report 4328184-4 (Version None)
Quarter: 2004Q1

REPORT INFORMATION
  Report Type: 
  Country: None (occurrence: None)
  Receive Date: 20040331
  Receipt Date: 20040324
  Transmission Date: 20041129
  Serious: Yes (Life-Threatening)
  Sender: FDA-Public Use
  Company Number: US-GLAXOSMITHKLINE-A0504680A

PATIENT
  Age: 45 Year
  Sex: Male

DRUGS (7)
  1. COMBIVIR [Suspect]
     Indication: HIV INFECTION
     Dosage: 1TAB TWICE PER DAY
     Route: 048
     Dates: start: 20031104
  2. EFAVIRENZ [Suspect]
     Indication: HIV INFECTION
     Dosage: 600MG PER DAY
     Route: 048
     Dates: start: 20031104
  3. LISINOPRIL [Concomitant]
     Dates: start: 20031228
  4. NEURONTIN [Concomitant]
     Dates: start: 20031112
  5. ACYCLOVIR [Concomitant]
     Dates: start: 20031115
  6. BACTRIM DS [Concomitant]
     Dates: start: 20030824
  7. HYDROCHLOROTHIAZIDE [Concomitant]
     Dates: start: 20030224

REACTIONS (2)
  - HYPERLIPIDAEMIA [None]
  - LOW DENSITY LIPOPROTEIN INCREASED [None]
